FAERS Safety Report 10423061 (Version 1)
Quarter: 2014Q3

REPORT INFORMATION
  Report Type: Spontaneous
  Country: US (occurrence: None)
  Receive Date: 20140722
  Receipt Date: 20140722
  Transmission Date: 20150326
  Serious: No
  Sender: FDA-Public Use
  Company Number: AEGR00518

PATIENT
  Age: 40 Year
  Sex: Male
  Weight: 120.2 kg

DRUGS (4)
  1. NIACIN (NICOTINIC ACID) [Concomitant]
  2. JUXTAPID [Suspect]
     Active Substance: LOMITAPIDE MESYLATE
     Indication: TYPE IIA HYPERLIPIDAEMIA
     Route: 048
     Dates: start: 20140228
  3. ZETIA [Concomitant]
     Active Substance: EZETIMIBE
  4. ROSUVASTATIN (ROSUVASTATIN) [Concomitant]
     Active Substance: ROSUVASTATIN

REACTIONS (1)
  - Dyspepsia [None]

NARRATIVE: CASE EVENT DATE: 201405
